FAERS Safety Report 4528891-4 (Version None)
Quarter: 2004Q4

REPORT INFORMATION
  Report Type: 
  Country: None (occurrence: None)
  Receive Date: 20041214
  Receipt Date: 20041202
  Transmission Date: 20050328
  Serious: Yes (Hospitalization, Other)
  Sender: FDA-Public Use
  Company Number: HQWYE751603DEC04

PATIENT
  Age: 34 Year
  Sex: Female

DRUGS (4)
  1. NORGESTREL AND ETHINYL ESTRADIOL [Suspect]
     Indication: DYSMENORRHOEA
     Dosage: 1 TABLET 1X PER 1 DAY
     Route: 048
     Dates: start: 20040720, end: 20040821
  2. ANGE-28 (LEVONORGESTREL/ETHINYL ESTRADIOL/INERT, TABLET) [Suspect]
     Indication: DYSMENORRHOEA
     Dosage: 1 TABLET 1X PER 1 DAY
     Route: 048
     Dates: start: 20040819, end: 20040830
  3. ADONA (CARBAZOCHROME SODIUM SULFONATE) [Concomitant]
  4. TRANSAMIN (TRANEXAMIC ACID) [Concomitant]

REACTIONS (1)
  - PULMONARY INFARCTION [None]
